FAERS Safety Report 22066938 (Version 2)
Quarter: 2023Q1

REPORT INFORMATION
  Report Type: Spontaneous
  Country: US (occurrence: US)
  Receive Date: 20230306
  Receipt Date: 20230314
  Transmission Date: 20230418
  Serious: No
  Sender: FDA-Public Use
  Company Number: US-AMGEN-USASP2023037884

PATIENT
  Age: 68 Year
  Sex: Female
  Weight: 78.458 kg

DRUGS (1)
  1. VECTIBIX [Suspect]
     Active Substance: PANITUMUMAB
     Indication: Product used for unknown indication
     Dosage: 472 MILLIGRAM, Q2WK (6MG/KG)
     Route: 042
     Dates: start: 20220830, end: 20230214

REACTIONS (4)
  - Eye infection bacterial [Unknown]
  - Conjunctivitis [Unknown]
  - Rash [Unknown]
  - Hypomagnesaemia [Unknown]

NARRATIVE: CASE EVENT DATE: 20230101
